FAERS Safety Report 16847467 (Version 1)
Quarter: 2019Q3

REPORT INFORMATION
  Report Type: Spontaneous
  Country: PH (occurrence: PH)
  Receive Date: 20190924
  Receipt Date: 20190924
  Transmission Date: 20191005
  Serious: Yes (Hospitalization)
  Sender: FDA-Public Use
  Company Number: PHHY2019PH220979

PATIENT

DRUGS (1)
  1. ENTRESTO [Suspect]
     Active Substance: SACUBITRIL\VALSARTAN
     Indication: CARDIAC FAILURE
     Dosage: 0.5 DF (50 MG TABLET SPLIT IN TO TWO
     Route: 065

REACTIONS (4)
  - Prescribed underdose [Unknown]
  - Ejection fraction decreased [Unknown]
  - Pneumonia [Unknown]
  - Wrong technique in product usage process [Recovering/Resolving]
